FAERS Safety Report 4285197-9 (Version None)
Quarter: 2004Q1

REPORT INFORMATION
  Report Type: 
  Country: None (occurrence: None)
  Receive Date: 20040204
  Receipt Date: 20040127
  Transmission Date: 20041129
  Serious: Yes (Hospitalization)
  Sender: FDA-Public Use
  Company Number: FR-ROCHE-357145

PATIENT
  Age: 56 Year
  Sex: Female

DRUGS (2)
  1. CAPECITABINE [Suspect]
     Indication: BREAST CANCER
     Route: 048
     Dates: start: 20031016
  2. CAPECITABINE [Suspect]
     Dosage: 14 DAYS EVERY THREE WEEKS.
     Route: 048

REACTIONS (1)
  - RENAL FAILURE [None]
